FAERS Safety Report 10745219 (Version 1)
Quarter: 2015Q1

REPORT INFORMATION
  Report Type: Spontaneous
  Country: US (occurrence: None)
  Receive Date: 20150120
  Receipt Date: 20150120
  Transmission Date: 20150721
  Serious: Yes (Other)
  Sender: FDA-Public Use
  Company Number: 2013STP1000507

PATIENT
  Age: 66 Year
  Sex: Female
  Weight: 96.7 kg

DRUGS (11)
  1. CARVEDILOL (CARVEDILOL) [Concomitant]
     Active Substance: CARVEDILOL
  2. LISINOPRIL (LISINOPRIL) [Concomitant]
     Active Substance: LISINOPRIL
  3. FLUCONAZOLE (FLUCONAZOLE) [Concomitant]
     Active Substance: FLUCONAZOLE
  4. LIDOCAINE HCL (LIDOCAINE HYDROCHLORIDE) [Concomitant]
  5. CLONIDINE (CLONIDINE) [Concomitant]
     Active Substance: CLONIDINE
  6. DIGOXIN (DIGOXIN) [Concomitant]
     Active Substance: DIGOXIN
  7. HEPARIN SODIUM (HEPARIN SODIUM) [Concomitant]
     Active Substance: HEPARIN SODIUM
  8. FOLIC ACID (FOLIC ACID) [Concomitant]
     Active Substance: FOLIC ACID
  9. INSULIN GLARGINE (INSULIN GLARGINE) [Concomitant]
     Active Substance: INSULIN GLARGINE
  10. THIAMINE (THIAMINE HYDROCHLORIDE) [Concomitant]
  11. ABELCET [Suspect]
     Active Substance: AMPHOTERICIN B\DIMYRISTOYLPHOSPHATIDYLCHOLINE, DL-\DIMYRISTOYLPHOSPHATIDYLGLYCEROL, DL-
     Indication: COCCIDIOIDOMYCOSIS
     Route: 042
     Dates: start: 20131204, end: 20131204

REACTIONS (1)
  - Anaphylactic reaction [None]

NARRATIVE: CASE EVENT DATE: 20131204
